FAERS Safety Report 6877319-8 (Version None)
Quarter: 2010Q3

REPORT INFORMATION
  Report Type: 
  Country: None (occurrence: None)
  Receive Date: 20100727
  Receipt Date: 20090903
  Transmission Date: 20110219
  Serious: No
  Sender: FDA-Public Use
  Company Number: US-ABBOTT-09P-163-0595627-00

PATIENT
  Sex: Female
  Weight: 70.37 kg

DRUGS (3)
  1. SYNTHROID [Suspect]
     Indication: THYROIDECTOMY
     Dates: start: 20090801
  2. SYNTHROID [Suspect]
     Dosage: REPEATING112 MCG  FOR 2 DAYS, THEN 100 MCG FOR ONE DAY
     Dates: start: 20090801
  3. SYNTHROID [Suspect]
     Dates: start: 20020101

REACTIONS (5)
  - ASTHENIA [None]
  - BLOOD THYROID STIMULATING HORMONE ABNORMAL [None]
  - HAEMATOCRIT DECREASED [None]
  - PALPITATIONS [None]
  - RED BLOOD CELL COUNT DECREASED [None]
